FAERS Safety Report 21177049 (Version 2)
Quarter: 2022Q3

REPORT INFORMATION
  Report Type: Spontaneous
  Country: JP (occurrence: JP)
  Receive Date: 20220805
  Receipt Date: 20220830
  Transmission Date: 20221027
  Serious: No
  Sender: FDA-Public Use
  Company Number: JP-PFIZER INC-PV202200021953

PATIENT
  Age: 45 Year
  Sex: Male
  Weight: 94 kg

DRUGS (7)
  1. PAXLOVID [Suspect]
     Active Substance: NIRMATRELVIR\RITONAVIR
     Indication: COVID-19 treatment
     Dosage: [PF-07321332 300 MG]/[RITONAVIR 100 MG]; 2X/DAY
     Route: 048
     Dates: start: 20220707, end: 20220712
  2. LAC-B GRANULAR POWDER N [Concomitant]
     Dosage: 1 G, 3X/DAY
     Route: 048
  3. BETAMETHASONE [Concomitant]
     Active Substance: BETAMETHASONE
     Dosage: 1.0 MG, 1X/DAY
  4. PENTASA [Concomitant]
     Active Substance: MESALAMINE
     Dosage: 1 DF, 1X/DAY
  5. MERCAPTOPURINE [Concomitant]
     Active Substance: MERCAPTOPURINE
     Dosage: 0.4 G, 1X/DAY
     Route: 048
  6. VONOPRAZAN FUMARATE [Concomitant]
     Active Substance: VONOPRAZAN FUMARATE
     Dosage: 20 MG, 1X/DAY
     Route: 048
  7. FLAGYL [Concomitant]
     Active Substance: METRONIDAZOLE\METRONIDAZOLE HYDROCHLORIDE
     Dosage: 250 MG, 3X/DAY
     Route: 048

REACTIONS (6)
  - Product prescribing error [Unknown]
  - Off label use [Unknown]
  - Faeces soft [Unknown]
  - Dysgeusia [Recovered/Resolved]
  - Diarrhoea [Recovering/Resolving]
  - Dysphonia [Recovered/Resolved]

NARRATIVE: CASE EVENT DATE: 20220707
